FAERS Safety Report 6675741-6 (Version None)
Quarter: 2010Q2

REPORT INFORMATION
  Report Type: 
  Country: None (occurrence: None)
  Receive Date: 20100409
  Receipt Date: 20100331
  Transmission Date: 20101027
  Serious: Yes (Hospitalization)
  Sender: FDA-Public Use
  Company Number: CA-ABBOTT-08P-028-0449664-00

PATIENT
  Sex: Male
  Weight: 63 kg

DRUGS (4)
  1. MAVIK [Suspect]
     Indication: HYPERTENSION
     Route: 048
     Dates: start: 20080319
  2. MAVIK [Suspect]
     Route: 048
     Dates: start: 20071121, end: 20080319
  3. ADALAT CC [Concomitant]
     Indication: HYPERTENSION
     Route: 048
     Dates: start: 20080319
  4. ATIVAN [Concomitant]
     Indication: ANXIETY
     Route: 048
     Dates: start: 20080314

REACTIONS (2)
  - ADJUSTMENT DISORDER [None]
  - DRUG INEFFECTIVE [None]
